FAERS Safety Report 12874679 (Version 1)
Quarter: 2016Q4

REPORT INFORMATION
  Report Type: Spontaneous
  Country: US (occurrence: US)
  Receive Date: 20161021
  Receipt Date: 20161021
  Transmission Date: 20170207
  Serious: No
  Sender: FDA-Public Use
  Company Number: US-ZYDUS-009841

PATIENT
  Age: 75 Year
  Sex: Female

DRUGS (6)
  1. CARVEDILOL/CARVEDILOL HYDROCHLODRIDE [Suspect]
     Active Substance: CARVEDILOL
     Indication: HYPERTENSION
     Route: 048
     Dates: start: 201509, end: 201510
  2. VITAMINS NOS [Concomitant]
     Active Substance: VITAMINS
     Indication: PRODUCT USED FOR UNKNOWN INDICATION
  3. CLOPIDOGREL [Concomitant]
     Active Substance: CLOPIDOGREL BISULFATE
     Indication: PRODUCT USED FOR UNKNOWN INDICATION
  4. CARVEDILOL/CARVEDILOL HYDROCHLODRIDE [Suspect]
     Active Substance: CARVEDILOL
     Indication: HYPERTENSION
     Dosage: BY CUTTING HER 12.5 MG PILLS IN QUARTERS
     Route: 048
     Dates: start: 201509, end: 201510
  5. CARVEDILOL/CARVEDILOL HYDROCHLODRIDE [Suspect]
     Active Substance: CARVEDILOL
     Indication: HYPERTENSION
     Route: 048
     Dates: start: 201509, end: 201510
  6. CARVEDILOL/CARVEDILOL HYDROCHLODRIDE [Suspect]
     Active Substance: CARVEDILOL
     Indication: HYPERTENSION
     Dosage: BY CUTTING HER 12.5 MG PILLS IN HALF
     Route: 048
     Dates: start: 201509, end: 201510

REACTIONS (22)
  - Dry eye [Not Recovered/Not Resolved]
  - Diarrhoea [Not Recovered/Not Resolved]
  - Back pain [Not Recovered/Not Resolved]
  - Heart rate irregular [Not Recovered/Not Resolved]
  - Bradycardia [Recovered/Resolved]
  - Peripheral coldness [Recovered/Resolved]
  - Arthralgia [Not Recovered/Not Resolved]
  - Vision blurred [Not Recovered/Not Resolved]
  - Contusion [Not Recovered/Not Resolved]
  - Pallor [Not Recovered/Not Resolved]
  - Dizziness [Recovered/Resolved]
  - Hyperglycaemia [Unknown]
  - Dry mouth [Not Recovered/Not Resolved]
  - Urinary incontinence [Recovered/Resolved]
  - Dry skin [Not Recovered/Not Resolved]
  - Feeling abnormal [Recovered/Resolved]
  - Oropharyngeal pain [Recovered/Resolved]
  - Fatigue [Not Recovered/Not Resolved]
  - Cough [Recovered/Resolved]
  - Muscle spasms [Not Recovered/Not Resolved]
  - Chapped lips [Not Recovered/Not Resolved]
  - Headache [Recovered/Resolved]

NARRATIVE: CASE EVENT DATE: 201510
